FAERS Safety Report 6158130-2 (Version None)
Quarter: 2009Q2

REPORT INFORMATION
  Report Type: 
  Country: None (occurrence: None)
  Receive Date: 20090417
  Receipt Date: 20090408
  Transmission Date: 20091009
  Serious: Yes (Hospitalization)
  Sender: FDA-Public Use
  Company Number: JP-ROCHE-627402

PATIENT
  Age: 60 Year

DRUGS (2)
  1. ROCEPHIN [Suspect]
     Indication: PANCREATITIS ACUTE
     Route: 041
  2. TAKEPRON [Suspect]
     Indication: DRUG USE FOR UNKNOWN INDICATION
     Route: 065

REACTIONS (1)
  - LIVER DISORDER [None]
